FAERS Safety Report 5632276-7 (Version None)
Quarter: 2008Q1

REPORT INFORMATION
  Report Type: 
  Country: None (occurrence: None)
  Receive Date: 20080220
  Receipt Date: 20071204
  Transmission Date: 20080703
  Serious: No
  Sender: FDA-Public Use
  Company Number: US-BAYER-200714001BCC

PATIENT
  Age: 48 Year
  Sex: Female
  Weight: 52 kg

DRUGS (2)
  1. FINACEA [Suspect]
     Indication: ROSACEA
     Route: 061
     Dates: start: 20071127, end: 20070101
  2. XANAX [Concomitant]
     Indication: ANXIETY
     Dosage: UNIT DOSE: 0.5 MG
     Dates: start: 20060101

REACTIONS (2)
  - APPLICATION SITE RASH [None]
  - ROSACEA [None]
